FAERS Safety Report 13040682 (Version 2)
Quarter: 2016Q4

REPORT INFORMATION
  Report Type: Spontaneous
  Country: FR (occurrence: FR)
  Receive Date: 20161219
  Receipt Date: 20161220
  Transmission Date: 20170207
  Serious: Yes (Other)
  Sender: FDA-Public Use
  Company Number: FR-BAXTER-2016BAX062320

PATIENT
  Age: 56 Year
  Sex: Male

DRUGS (5)
  1. VELCADE [Suspect]
     Active Substance: BORTEZOMIB
     Indication: AMYLOIDOSIS
     Dosage: TOTAL 8 COURSES
     Route: 058
     Dates: start: 201410, end: 201505
  2. REVLIMID [Suspect]
     Active Substance: LENALIDOMIDE
     Indication: AMYLOIDOSIS
     Dosage: DAILY 21 DAYS/28DAYS (DAY1 COURSE 1)
     Route: 048
     Dates: start: 20160705, end: 20160709
  3. DEXAMETHASONE. [Suspect]
     Active Substance: DEXAMETHASONE
     Indication: AMYLOIDOSIS
     Dosage: TOTAL 8 COURSES
     Route: 048
     Dates: start: 201410, end: 201505
  4. ENDOXAN 50 MG, COMPRIM? ENROB? [Suspect]
     Active Substance: CYCLOPHOSPHAMIDE
     Indication: AMYLOIDOSIS
     Dosage: TOTAL 8 COURSES
     Route: 048
     Dates: start: 201410, end: 201505
  5. DEXAMETHASONE. [Suspect]
     Active Substance: DEXAMETHASONE
     Indication: AMYLOIDOSIS
     Dosage: DAY 1 COURSE 1
     Route: 065
     Dates: start: 20160705, end: 20160709

REACTIONS (7)
  - Rash maculo-papular [Unknown]
  - N-terminal prohormone brain natriuretic peptide increased [Not Recovered/Not Resolved]
  - Therapy partial responder [Unknown]
  - Aplastic anaemia [Unknown]
  - Angina pectoris [Not Recovered/Not Resolved]
  - Cardiac amyloidosis [Unknown]
  - Renal impairment [Unknown]

NARRATIVE: CASE EVENT DATE: 201606
